FAERS Safety Report 19729293 (Version 1)
Quarter: 2021Q3

REPORT INFORMATION
  Report Type: Report from Study
  Country: DO (occurrence: DO)
  Receive Date: 20210820
  Receipt Date: 20210820
  Transmission Date: 20211014
  Serious: Yes (Death)
  Sender: FDA-Public Use
  Company Number: NVSC2021DO112635

PATIENT
  Age: 52 Year
  Sex: Female

DRUGS (2)
  1. KISQALI [Suspect]
     Active Substance: RIBOCICLIB
     Dosage: 600 MG, Q24H
     Route: 065
     Dates: start: 20210107
  2. KISQALI [Suspect]
     Active Substance: RIBOCICLIB
     Indication: BREAST CANCER
     Dosage: 600 MG, QD
     Route: 065
     Dates: start: 20201113, end: 20210313

REACTIONS (7)
  - Dyskinesia [Unknown]
  - Bone pain [Unknown]
  - Constipation [Unknown]
  - Dysstasia [Not Recovered/Not Resolved]
  - Pain [Not Recovered/Not Resolved]
  - General physical health deterioration [Fatal]
  - Hypophagia [Unknown]

NARRATIVE: CASE EVENT DATE: 20210310
